FAERS Safety Report 9714323 (Version 1)
Quarter: 2013Q4

REPORT INFORMATION
  Report Type: Spontaneous
  Country: US (occurrence: US)
  Receive Date: 20131126
  Receipt Date: 20131126
  Transmission Date: 20140711
  Serious: No
  Sender: FDA-Public Use
  Company Number: US-009507513-1311USA007979

PATIENT
  Sex: Male

DRUGS (3)
  1. CLARITIN-D-24 [Suspect]
     Indication: LACRIMATION INCREASED
     Dosage: UNK, ONCE
     Route: 048
     Dates: start: 20131108
  2. CLARITIN-D-24 [Suspect]
     Indication: SNEEZING
  3. CLARITIN-D-24 [Suspect]
     Indication: RHINORRHOEA

REACTIONS (1)
  - Drug ineffective [Unknown]
